FAERS Safety Report 11957682 (Version 2)
Quarter: 2016Q1

REPORT INFORMATION
  Report Type: Report from Study
  Country: IT (occurrence: IT)
  Receive Date: 20160126
  Receipt Date: 20160308
  Transmission Date: 20160526
  Serious: Yes (Life-Threatening)
  Sender: FDA-Public Use
  Company Number: IT-EXELIXIS-XL18416005967

PATIENT
  Age: 49 Year
  Sex: Male
  Weight: 75 kg

DRUGS (7)
  1. XL184 [Suspect]
     Active Substance: CABOZANTINIB
     Dosage: 75 MG, QD
     Route: 048
     Dates: end: 20151208
  2. NORVASC [Concomitant]
     Active Substance: AMLODIPINE BESYLATE
  3. LANSOX [Concomitant]
     Active Substance: LANSOPRAZOLE
  4. LOBIVON [Concomitant]
     Active Substance: NEBIVOLOL HYDROCHLORIDE
  5. XL184 [Suspect]
     Active Substance: CABOZANTINIB
     Indication: MEDULLARY THYROID CANCER
     Dosage: 175 MG, QD
     Route: 048
     Dates: start: 20101122
  6. COAPROVEL [Concomitant]
     Active Substance: HYDROCHLOROTHIAZIDE\IRBESARTAN
  7. EUTIROX [Concomitant]
     Active Substance: LEVOTHYROXINE SODIUM

REACTIONS (1)
  - Renal failure [Not Recovered/Not Resolved]

NARRATIVE: CASE EVENT DATE: 20151125
